FAERS Safety Report 16463600 (Version 1)
Quarter: 2019Q3

REPORT INFORMATION
  Report Type: Spontaneous
  Country: US (occurrence: US)
  Receive Date: 20190620
  Receipt Date: 20190620
  Transmission Date: 20191004
  Serious: Yes (Hospitalization)
  Sender: FDA-Public Use
  Company Number: None

PATIENT
  Sex: Male

DRUGS (4)
  1. STELARA [Suspect]
     Active Substance: USTEKINUMAB
     Indication: CROHN^S DISEASE
     Dosage: ?          OTHER FREQUENCY:EVERY 8 WEEKS;?
     Route: 058
     Dates: start: 20190211
  2. METRONIDAZOLE 500MG TABLETS [Concomitant]
     Active Substance: METRONIDAZOLE
     Dates: start: 20190607
  3. CIPROFLOXACIN 500MG TABLETS [Concomitant]
     Active Substance: CIPROFLOXACIN
     Dates: start: 20190607
  4. FLUCONAZOLE 100MG TABLETS [Concomitant]
     Dates: start: 20190607

REACTIONS (2)
  - Impaired quality of life [None]
  - Crohn^s disease [None]
